FAERS Safety Report 9314172 (Version 1)
Quarter: 2013Q2

REPORT INFORMATION
  Report Type: Spontaneous
  Country: GB (occurrence: None)
  Receive Date: 20130521
  Receipt Date: 20130521
  Transmission Date: 20140414
  Serious: Yes (Life-Threatening, Hospitalization)
  Sender: FDA-Public Use
  Company Number: E2B-00000829

PATIENT
  Age: 11 Year
  Sex: Male
  Weight: 35 kg

DRUGS (7)
  1. LEVETIRACETAM (UNKNOWN) (LEVETIRACETAM) [Suspect]
     Indication: EPILEPSY
     Dosage: 2 GM (1 GM, 2 IN 1 D), ORAL
     Route: 048
     Dates: start: 20130228, end: 20130419
  2. ETHOSUXIMIDE (UNKNOWN) [Concomitant]
  3. AZITHROMYCIN (UNKNOWN) [Concomitant]
  4. DOMPERIDONE (UNKNOWN) [Concomitant]
  5. POTASSIUM CHLORIDE/ SODIUM HYDROGEN CARBONATE/ MACROGOL 3350/ SODIUM CHLORIDE/ SODIUM BICARBONATE (MOVICOL) (UNKNOWN) [Concomitant]
  6. SODIUM VALPROATE (UNKNOWN) [Concomitant]
  7. RANITIDINE (UNKNOWN) [Concomitant]

REACTIONS (4)
  - Thrombocytopenia [None]
  - Gingival bleeding [None]
  - Rash [None]
  - Procedural haemorrhage [None]
